FAERS Safety Report 11097791 (Version 2)
Quarter: 2015Q2

REPORT INFORMATION
  Report Type: Spontaneous
  Country: US (occurrence: US)
  Receive Date: 20150507
  Receipt Date: 20150612
  Transmission Date: 20150821
  Serious: No
  Sender: FDA-Public Use
  Company Number: US-PFIZER INC-2015149758

PATIENT
  Age: 85 Year
  Sex: Female
  Weight: 54.88 kg

DRUGS (2)
  1. LATANOPROST. [Suspect]
     Active Substance: LATANOPROST
     Indication: BORDERLINE GLAUCOMA
     Dosage: 1 GTT, UNK
     Dates: start: 20150428
  2. LATANOPROST. [Suspect]
     Active Substance: LATANOPROST
     Indication: INTRAOCULAR PRESSURE INCREASED
     Dosage: UNK
     Dates: start: 20150428

REACTIONS (5)
  - Dacryostenosis acquired [Recovered/Resolved]
  - Cyst [Recovered/Resolved]
  - Product quality issue [Recovered/Resolved]
  - Foreign body in eye [Recovered/Resolved]
  - Circumstance or information capable of leading to medication error [Recovered/Resolved]

NARRATIVE: CASE EVENT DATE: 20150429
